FAERS Safety Report 21442822 (Version 5)
Quarter: 2023Q1

REPORT INFORMATION
  Report Type: Report from Study
  Country: US (occurrence: US)
  Receive Date: 20221012
  Receipt Date: 20230313
  Transmission Date: 20230417
  Serious: Yes (Hospitalization)
  Sender: FDA-Public Use
  Company Number: US-ABBVIE-4149788

PATIENT
  Sex: Male

DRUGS (2)
  1. IMBRUVICA [Suspect]
     Active Substance: IBRUTINIB
     Indication: Chronic lymphocytic leukaemia
     Route: 048
     Dates: start: 20220825
  2. PRAMIPEXOLE [Concomitant]
     Active Substance: PRAMIPEXOLE
     Indication: Product used for unknown indication
     Dosage: FORM STRENGTH: 1.5 MILLIGRAM

REACTIONS (11)
  - COVID-19 [Unknown]
  - Muscle spasms [Unknown]
  - Lymphadenopathy [Unknown]
  - Weight increased [Unknown]
  - Diabetes mellitus [Unknown]
  - Tooth discolouration [Unknown]
  - Chronic obstructive pulmonary disease [Unknown]
  - Abdominal pain upper [Recovered/Resolved]
  - Insomnia [Recovered/Resolved]
  - Musculoskeletal stiffness [Unknown]
  - Tooth extraction [Unknown]
